FAERS Safety Report 15595391 (Version 2)
Quarter: 2018Q4

REPORT INFORMATION
  Report Type: Spontaneous
  Country: US (occurrence: US)
  Receive Date: 20181107
  Receipt Date: 20181225
  Transmission Date: 20190205
  Serious: Yes (Hospitalization)
  Sender: FDA-Public Use
  Company Number: US-ASTRAZENECA-2018SF44120

PATIENT
  Age: 77 Year
  Sex: Male
  Weight: 61.2 kg

DRUGS (6)
  1. BEVESPI AEROSPHERE [Suspect]
     Active Substance: FORMOTEROL FUMARATE\GLYCOPYRROLATE
     Indication: BRONCHITIS CHRONIC
     Dosage: 9/4.8 MCG 2 PUFFS TWICE PER DAY
     Route: 055
     Dates: start: 201808
  2. VITAMINS [Concomitant]
     Active Substance: VITAMINS
     Route: 065
  3. SYMBICORT [Suspect]
     Active Substance: BUDESONIDE\FORMOTEROL FUMARATE DIHYDRATE
     Indication: CHRONIC OBSTRUCTIVE PULMONARY DISEASE
     Dosage: 2 PUFFS TWICE PER DAY
     Route: 055
     Dates: start: 2014, end: 201807
  4. BEVESPI AEROSPHERE [Suspect]
     Active Substance: FORMOTEROL FUMARATE\GLYCOPYRROLATE
     Indication: CHRONIC OBSTRUCTIVE PULMONARY DISEASE
     Dosage: 9/4.8 MCG 2 PUFFS TWICE PER DAY
     Route: 055
     Dates: start: 201808
  5. OXYGEN. [Concomitant]
     Active Substance: OXYGEN
     Indication: CHRONIC OBSTRUCTIVE PULMONARY DISEASE
     Dosage: 2 L/MIN AT NIGHT
     Route: 055
  6. SYMBICORT [Suspect]
     Active Substance: BUDESONIDE\FORMOTEROL FUMARATE DIHYDRATE
     Indication: BRONCHITIS CHRONIC
     Dosage: 2 PUFFS TWICE PER DAY
     Route: 055
     Dates: start: 2014, end: 201807

REACTIONS (11)
  - Pneumothorax [Unknown]
  - Heart rate decreased [Unknown]
  - Pneumonia bacterial [Unknown]
  - Bronchiectasis [Unknown]
  - Device malfunction [Unknown]
  - Pneumonia [Unknown]
  - Respiratory failure [Unknown]
  - Pneumothorax spontaneous [Unknown]
  - Off label use [Unknown]
  - Weight decreased [Unknown]
  - Product use in unapproved indication [Unknown]

NARRATIVE: CASE EVENT DATE: 2015
